FAERS Safety Report 20595235 (Version 2)
Quarter: 2022Q2

REPORT INFORMATION
  Report Type: Spontaneous
  Country: US (occurrence: US)
  Receive Date: 20220315
  Receipt Date: 20220426
  Transmission Date: 20220720
  Serious: Yes (Other)
  Sender: FDA-Public Use
  Company Number: US-SA-SAC20220314000103

PATIENT
  Age: 67 Year
  Sex: Male

DRUGS (1)
  1. ZANTAC [Suspect]
     Active Substance: RANITIDINE HYDROCHLORIDE
     Indication: Gastrooesophageal reflux disease
     Dosage: UNK, QD
     Dates: start: 201805, end: 201910

REACTIONS (3)
  - Oesophageal carcinoma [Unknown]
  - Gastric cancer stage IV [Unknown]
  - Disease progression [Unknown]

NARRATIVE: CASE EVENT DATE: 20191004
